FAERS Safety Report 5011845-1 (Version None)
Quarter: 2006Q2

REPORT INFORMATION
  Report Type: 
  Country: None (occurrence: None)
  Receive Date: 20060524
  Receipt Date: 20060524
  Transmission Date: 20061013
  Serious: Yes (Hospitalization)
  Sender: FDA-Public Use
  Company Number: None

PATIENT
  Age: 73 Year
  Sex: Male
  Weight: 75.5 kg

DRUGS (10)
  1. GLYBURIDE [Suspect]
     Indication: DIABETES MELLITUS NON-INSULIN-DEPENDENT
     Dosage: 10MG BID PO
     Route: 048
     Dates: start: 20040630, end: 20060112
  2. FERROUS SULFATE TAB [Concomitant]
  3. FLUNISOLIDE [Concomitant]
  4. HYDROXYZINE PAMOATE [Concomitant]
  5. DOCUSATE NA [Concomitant]
  6. FLUDROCORTISONE ACETATE [Concomitant]
  7. RIFAMPIN [Concomitant]
  8. OMEPRAZOLE [Concomitant]
  9. BISACODYL [Concomitant]
  10. MAGNESIUM OXIDE [Concomitant]

REACTIONS (2)
  - HYPOGLYCAEMIA [None]
  - PNEUMONIA [None]
